FAERS Safety Report 13916077 (Version 1)
Quarter: 2017Q3

REPORT INFORMATION
  Report Type: Spontaneous
  Country: US (occurrence: US)
  Receive Date: 20170829
  Receipt Date: 20170829
  Transmission Date: 20171127
  Serious: No
  Sender: FDA-Public Use
  Company Number: US-LEXICON PHARMACEUTICALS, INC-17-1606-00635

PATIENT
  Age: 83 Year
  Sex: Female

DRUGS (19)
  1. ATIVAN [Concomitant]
     Active Substance: LORAZEPAM
  2. CALTRATE [Concomitant]
     Active Substance: CALCIUM CARBONATE
  3. LEVOTHYROXIN [Concomitant]
     Active Substance: LEVOTHYROXINE
  4. TRAZODONE [Concomitant]
     Active Substance: TRAZODONE HYDROCHLORIDE
  5. TRIMETHOPRIM. [Concomitant]
     Active Substance: TRIMETHOPRIM
  6. DIPHENHYDRAMINE. [Concomitant]
     Active Substance: DIPHENHYDRAMINE
  7. LOMOTIL [Concomitant]
     Active Substance: ATROPINE SULFATE\DIPHENOXYLATE HYDROCHLORIDE
  8. COSOPT [Concomitant]
     Active Substance: DORZOLAMIDE HYDROCHLORIDE\TIMOLOL MALEATE
  9. PEPCID [Concomitant]
     Active Substance: FAMOTIDINE
  10. METOPROLOL. [Concomitant]
     Active Substance: METOPROLOL
  11. MULTIVITAMIN [Concomitant]
     Active Substance: VITAMINS
  12. PAREGORIC [Concomitant]
     Active Substance: MORPHINE
  13. DECADRON [Concomitant]
     Active Substance: DEXAMETHASONE
  14. FLUOXETINE [Concomitant]
     Active Substance: FLUOXETINE HYDROCHLORIDE
  15. VITAMIN B COMPLEX [Concomitant]
     Active Substance: CYANOCOBALAMIN\DEXPANTHENOL\NIACINAMIDE\PYRIDOXINE HYDROCHLORIDE\RIBOFLAVIN 5^-PHOSPHATE SODIUM\THIAMINE HYDROCHLORIDE\VITAMIN B COMPLEX
  16. COMPAZINE [Concomitant]
     Active Substance: PROCHLORPERAZINE MALEATE
  17. TELOTRISTAT ETHYL [Suspect]
     Active Substance: TELOTRISTAT ETHYL
     Indication: CARCINOID SYNDROME
     Route: 048
     Dates: start: 20170728, end: 20170731
  18. BRIMONIDINE TARTRATE. [Concomitant]
     Active Substance: BRIMONIDINE TARTRATE
  19. OMNICEF [Concomitant]
     Active Substance: CEFDINIR

REACTIONS (5)
  - Feeling abnormal [Unknown]
  - Off label use [Unknown]
  - Nausea [Unknown]
  - Abdominal discomfort [Unknown]
  - Retching [Unknown]

NARRATIVE: CASE EVENT DATE: 20170728
